FAERS Safety Report 6803863-5 (Version None)
Quarter: 2010Q2

REPORT INFORMATION
  Report Type: 
  Country: None (occurrence: None)
  Receive Date: 20100628
  Receipt Date: 20100621
  Transmission Date: 20101027
  Serious: Yes (Hospitalization)
  Sender: FDA-Public Use
  Company Number: DE-WYE-G06297410

PATIENT
  Sex: Female
  Weight: 70 kg

DRUGS (3)
  1. TREVILOR RETARD [Suspect]
     Dosage: MAX. 28 CAPSULES (MAX. OVERDOSE AMOUNT 2100 MG)
     Route: 048
     Dates: start: 20100619, end: 20100619
  2. BISOPROLOL FUMARATE [Suspect]
     Dosage: MAX. 9 TABLETS OF UNKNOWN STRENGTH (OVERDOSE AMOUNT UNKNOWN)
     Route: 048
     Dates: start: 20100619, end: 20100619
  3. DELIX [Suspect]
     Dosage: MAX. 11 TABLETS (MAX. OVERDOSE AMOUNT 55 MG)
     Route: 048
     Dates: start: 20100619, end: 20100619

REACTIONS (4)
  - GASTROINTESTINAL SOUNDS ABNORMAL [None]
  - INTENTIONAL OVERDOSE [None]
  - SOPOR [None]
  - SUICIDE ATTEMPT [None]
